FAERS Safety Report 8004753-5 (Version None)
Quarter: 2011Q4

REPORT INFORMATION
  Report Type: 
  Country: None (occurrence: None)
  Receive Date: 20111220
  Receipt Date: 20111201
  Transmission Date: 20120403
  Serious: Yes (Hospitalization)
  Sender: FDA-Public Use
  Company Number: 1000026155

PATIENT
  Sex: Male
  Weight: 51 kg

DRUGS (8)
  1. PANTOPRAZOL (PANTOPRAZOLE SODIUM SESQUIHYDRATE) (PANTOPRAZOLE SODIUM S [Concomitant]
  2. ROFLUMILAST (ROFLUMILAST) (TABLETS) [Suspect]
     Indication: CHRONIC OBSTRUCTIVE PULMONARY DISEASE
     Dosage: (500 MCG), ORAL
     Route: 048
     Dates: start: 20110504, end: 20110807
  3. ONBREZ (INDACATEROL MALEATE) (INDACATEROL MALEATE) [Concomitant]
  4. FRESUBIN (FRESUBIN) (FRESUBIN) [Concomitant]
  5. THEOPHYLLINE [Concomitant]
  6. BERODUAL (DUOVENT) (DUOVENT) [Concomitant]
  7. SPIRIVA (TIOTROPIUM BROMIDE) (INHALANT) (TIOTROPIUM BROMIDE) [Concomitant]
  8. BUDECORT (BUDESONIDE) (BUDESONIDE) [Concomitant]

REACTIONS (1)
  - PNEUMOTHORAX SPONTANEOUS TENSION [None]
